FAERS Safety Report 9403657 (Version 1)
Quarter: 2013Q3

REPORT INFORMATION
  Report Type: Spontaneous
  Country: US (occurrence: US)
  Receive Date: 20130717
  Receipt Date: 20130717
  Transmission Date: 20140515
  Serious: Yes (Other)
  Sender: FDA-Public Use
  Company Number: US-AMGEN-USASP2013048402

PATIENT
  Age: 64 Year
  Sex: Male
  Weight: 103 kg

DRUGS (4)
  1. PROCRIT [Suspect]
     Indication: ANAEMIA
     Dosage: UNK
     Route: 065
  2. INCIVEK [Suspect]
     Indication: HEPATITIS C
     Dosage: 750 MG, TID
     Route: 048
     Dates: start: 20130225
  3. PEGASYS [Suspect]
     Indication: HEPATITIS C
     Dosage: 180 MG, QD
     Route: 058
     Dates: start: 20130125
  4. RIBAVIRIN [Suspect]
     Dosage: 200 MG, BID
     Dates: start: 20130125

REACTIONS (7)
  - Ascites [Not Recovered/Not Resolved]
  - Dyspnoea [Not Recovered/Not Resolved]
  - Abdominal pain [Not Recovered/Not Resolved]
  - Poor quality sleep [Not Recovered/Not Resolved]
  - Pruritus [Not Recovered/Not Resolved]
  - Cough [Recovered/Resolved]
  - Rash [Unknown]
